FAERS Safety Report 16040603 (Version 1)
Quarter: 2019Q2

REPORT INFORMATION
  Report Type: Spontaneous
  Country: US (occurrence: US)
  Receive Date: 20190305
  Receipt Date: 20190305
  Transmission Date: 20190711
  Serious: Yes (Death)
  Sender: FDA-Public Use
  Company Number: None

PATIENT
  Age: 90 Year
  Sex: Male

DRUGS (1)
  1. DOFETILIDE. [Suspect]
     Active Substance: DOFETILIDE
     Indication: SPINAL OSTEOARTHRITIS
     Route: 048
     Dates: start: 20180307, end: 20190112

REACTIONS (1)
  - Death [None]

NARRATIVE: CASE EVENT DATE: 20190112
